FAERS Safety Report 11483127 (Version 1)
Quarter: 2015Q3

REPORT INFORMATION
  Report Type: Spontaneous
  Country: US (occurrence: US)
  Receive Date: 20150903
  Receipt Date: 20150903
  Transmission Date: 20151125
  Serious: No
  Sender: FDA-Public Use
  Company Number: US-ELI_LILLY_AND_COMPANY-US201205009012

PATIENT
  Age: 55 Year
  Sex: Female

DRUGS (4)
  1. CYMBALTA [Suspect]
     Active Substance: DULOXETINE HYDROCHLORIDE
     Indication: FIBROMYALGIA
     Dosage: 60 MG, UNK
  2. CYMBALTA [Suspect]
     Active Substance: DULOXETINE HYDROCHLORIDE
     Dosage: 20 MG, QOD
     Dates: end: 20120522
  3. CYMBALTA [Suspect]
     Active Substance: DULOXETINE HYDROCHLORIDE
     Dosage: 20 MG, QD
  4. CYMBALTA [Suspect]
     Active Substance: DULOXETINE HYDROCHLORIDE
     Dosage: 40 MG, QD

REACTIONS (18)
  - Drug dispensing error [Recovered/Resolved]
  - Drug withdrawal syndrome [Unknown]
  - Personality change [Unknown]
  - Gastrointestinal hypomotility [Unknown]
  - Abnormal dreams [Unknown]
  - Dizziness [Unknown]
  - Decreased appetite [Unknown]
  - Headache [Unknown]
  - Sexual dysfunction [Unknown]
  - Drug effect incomplete [Unknown]
  - Palpitations [Unknown]
  - Irritability [Unknown]
  - Fatigue [Unknown]
  - Vomiting [Unknown]
  - Abasia [Unknown]
  - Dyspnoea [Unknown]
  - Constipation [Recovering/Resolving]
  - Asthenia [Unknown]
